FAERS Safety Report 8214101-3 (Version None)
Quarter: 2012Q1

REPORT INFORMATION
  Report Type: 
  Country: None (occurrence: None)
  Receive Date: 20120316
  Receipt Date: 20120312
  Transmission Date: 20120608
  Serious: No
  Sender: FDA-Public Use
  Company Number: US-PFIZER INC-2011301170

PATIENT
  Sex: Male
  Weight: 73.923 kg

DRUGS (1)
  1. FLECTOR [Suspect]
     Indication: ARTHRITIS
     Dosage: UNK
     Route: 062
     Dates: start: 20111011, end: 20111018

REACTIONS (1)
  - DRUG INEFFECTIVE [None]
